FAERS Safety Report 11584822 (Version 1)
Quarter: 2015Q4

REPORT INFORMATION
  Report Type: Spontaneous
  Country: ES (occurrence: ES)
  Receive Date: 20151001
  Receipt Date: 20151001
  Transmission Date: 20160304
  Serious: Yes (Hospitalization)
  Sender: FDA-Public Use
  Company Number: ES-009507513-1509ESP013866

PATIENT
  Age: 26 Year
  Sex: Female
  Weight: 60 kg

DRUGS (1)
  1. NUVARING [Suspect]
     Active Substance: ETHINYL ESTRADIOL\ETONOGESTREL
     Indication: POLYCYSTIC OVARIES
     Dosage: 0,120/0,015 MG/DAY
     Route: 065
     Dates: start: 20150907

REACTIONS (1)
  - Sacroiliitis [Unknown]

NARRATIVE: CASE EVENT DATE: 20150910
